FAERS Safety Report 4914513-7 (Version None)
Quarter: 2006Q1

REPORT INFORMATION
  Report Type: 
  Country: None (occurrence: None)
  Receive Date: 20060216
  Receipt Date: 20051025
  Transmission Date: 20060701
  Serious: Yes (Hospitalization)
  Sender: FDA-Public Use
  Company Number: US-MERCK-0510USA09055

PATIENT
  Age: 64 Year
  Sex: Female

DRUGS (11)
  1. VIOXX [Suspect]
     Route: 048
     Dates: start: 19990901, end: 20040104
  2. PREMARIN [Concomitant]
     Route: 065
  3. TUMS [Concomitant]
     Route: 065
  4. MECLIZINE [Concomitant]
     Route: 065
  5. DEMADEX [Concomitant]
     Route: 065
  6. DIOVAN [Concomitant]
     Route: 065
  7. DITROPAN XL [Concomitant]
     Route: 065
  8. THEOPHYLLINE [Concomitant]
     Route: 065
  9. PROVENTIL [Concomitant]
     Route: 055
  10. SINGULAIR [Concomitant]
     Route: 065
  11. PREMARIN [Concomitant]
     Route: 067

REACTIONS (11)
  - ARRHYTHMIA [None]
  - BONE CYST [None]
  - DEEP VEIN THROMBOSIS [None]
  - DIABETES MELLITUS [None]
  - DILATATION VENTRICULAR [None]
  - EXOSTOSIS [None]
  - MENISCUS LESION [None]
  - MITRAL VALVE CALCIFICATION [None]
  - MITRAL VALVE INCOMPETENCE [None]
  - PULMONARY EMBOLISM [None]
  - VENTRICULAR HYPERTROPHY [None]
